FAERS Safety Report 13957277 (Version 3)
Quarter: 2017Q4

REPORT INFORMATION
  Report Type: Spontaneous
  Country: DE (occurrence: DE)
  Receive Date: 20170912
  Receipt Date: 20171109
  Transmission Date: 20180320
  Serious: Yes (Life-Threatening, Hospitalization, Other)
  Sender: FDA-Public Use
  Company Number: DE-UCBSA-2017035743

PATIENT
  Age: 39 Year
  Sex: Female
  Weight: 80 kg

DRUGS (3)
  1. MESALAZINE [Concomitant]
     Active Substance: MESALAMINE
     Indication: PRODUCT USED FOR UNKNOWN INDICATION
  2. CIMZIA [Suspect]
     Active Substance: CERTOLIZUMAB PEGOL
     Indication: PSORIATIC ARTHROPATHY
     Dosage: UNK
     Dates: start: 20160709
  3. CIMZIA [Suspect]
     Active Substance: CERTOLIZUMAB PEGOL
     Dosage: 200 MG, EV 2 WEEKS(QOW)
     Dates: start: 201609

REACTIONS (12)
  - Refeeding syndrome [Recovering/Resolving]
  - Septic encephalopathy [Recovering/Resolving]
  - Impaired healing [Recovering/Resolving]
  - Colitis [Recovered/Resolved with Sequelae]
  - Urinary tract infection [Recovering/Resolving]
  - Hepatotoxicity [Recovering/Resolving]
  - Anaemia [Recovering/Resolving]
  - Polyserositis [Recovering/Resolving]
  - Sepsis [Recovering/Resolving]
  - Weight decreased [Recovering/Resolving]
  - Coagulopathy [Recovering/Resolving]
  - Malnutrition [Recovering/Resolving]

NARRATIVE: CASE EVENT DATE: 201707
